FAERS Safety Report 20580800 (Version 1)
Quarter: 2022Q1

REPORT INFORMATION
  Report Type: Spontaneous
  Country: US (occurrence: US)
  Receive Date: 20220311
  Receipt Date: 20220311
  Transmission Date: 20220423
  Serious: No
  Sender: FDA-Public Use
  Company Number: US-EPICPHARMA-US-2022EPCSPO00151

PATIENT
  Sex: Male

DRUGS (1)
  1. CHOLESTYRAMINE LIGHT [Suspect]
     Active Substance: CHOLESTYRAMINE
     Indication: Product used for unknown indication
     Route: 065

REACTIONS (4)
  - Oropharyngeal pain [Unknown]
  - Feeling abnormal [Unknown]
  - Unevaluable event [Unknown]
  - Product solubility abnormal [Unknown]
